FAERS Safety Report 9493135 (Version 3)
Quarter: 2013Q3

REPORT INFORMATION
  Report Type: Spontaneous
  Country: AR (occurrence: AR)
  Receive Date: 20130902
  Receipt Date: 20130919
  Transmission Date: 20140515
  Serious: Yes (Other)
  Sender: FDA-Public Use
  Company Number: AR-AMGEN-ARGSP2012063762

PATIENT
  Age: 77 Year
  Sex: Female

DRUGS (3)
  1. ENBREL [Suspect]
     Indication: RHEUMATOID ARTHRITIS
     Dosage: 50 MG, WEEKLY
     Route: 058
     Dates: start: 20100707
  2. ENBREL [Suspect]
     Dosage: UNK
     Route: 065
  3. TEGRETAL [Concomitant]
     Indication: TRIGEMINAL NEURALGIA
     Dosage: UNK

REACTIONS (6)
  - Decreased immune responsiveness [Recovered/Resolved]
  - Hand deformity [Not Recovered/Not Resolved]
  - Hearing impaired [Not Recovered/Not Resolved]
  - Bronchitis [Recovered/Resolved]
  - Pneumonia [Recovered/Resolved]
  - Injection site pain [Recovered/Resolved]
